FAERS Safety Report 5737946-8 (Version None)
Quarter: 2008Q2

REPORT INFORMATION
  Report Type: 
  Country: None (occurrence: None)
  Receive Date: 20080514
  Receipt Date: 20080505
  Transmission Date: 20081010
  Serious: Yes (Congenital Anomaly)
  Sender: FDA-Public Use
  Company Number: US-GILEAD-2008-0016238

PATIENT
  Sex: Male

DRUGS (3)
  1. TRUVADA [Suspect]
     Route: 048
  2. KALETRA [Concomitant]
     Route: 048
  3. DAPSONE [Concomitant]

REACTIONS (1)
  - POLYDACTYLY [None]
